FAERS Safety Report 7482833-0 (Version None)
Quarter: 2011Q2

REPORT INFORMATION
  Report Type: 
  Country: None (occurrence: None)
  Receive Date: 20110516
  Receipt Date: 20100727
  Transmission Date: 20111010
  Serious: Yes (Other)
  Sender: FDA-Public Use
  Company Number: PHHY2010DE92128

PATIENT
  Sex: Female

DRUGS (3)
  1. EXTAVIA [Suspect]
     Indication: MULTIPLE SCLEROSIS
     Dosage: UNK
     Route: 058
     Dates: start: 20100709
  2. ANTIDEPRESSANTS [Suspect]
  3. DEHYDRATION TABLETS [Suspect]

REACTIONS (5)
  - HYPOTENSION [None]
  - DIZZINESS [None]
  - ALOPECIA [None]
  - MENTAL DISORDER [None]
  - MINERAL DEFICIENCY [None]
